FAERS Safety Report 8080694-2 (Version None)
Quarter: 2012Q1

REPORT INFORMATION
  Report Type: 
  Country: None (occurrence: None)
  Receive Date: 20120130
  Receipt Date: 20120124
  Transmission Date: 20120608
  Serious: Yes (Death)
  Sender: FDA-Public Use
  Company Number: PHEH2012US002282

PATIENT
  Sex: Male

DRUGS (1)
  1. AFINITOR [Suspect]
     Indication: RENAL CANCER
     Dosage: 10 MG, DAILY
     Route: 048
     Dates: start: 20111207, end: 20111216

REACTIONS (5)
  - DEATH [None]
  - FAILURE TO THRIVE [None]
  - PAIN [None]
  - HYPOXIA [None]
  - DECREASED APPETITE [None]
